FAERS Safety Report 19083304 (Version 1)
Quarter: 2021Q2

REPORT INFORMATION
  Report Type: Spontaneous
  Country: NL (occurrence: GB)
  Receive Date: 20210401
  Receipt Date: 20210401
  Transmission Date: 20210717
  Serious: Yes (Hospitalization, Other)
  Sender: FDA-Public Use
  Company Number: NL-PFIZER INC-2021311616

PATIENT
  Sex: Female

DRUGS (12)
  1. OLANZAPINE. [Suspect]
     Active Substance: OLANZAPINE
     Dosage: 15 MG
  2. ARIPIPRAZOLE. [Suspect]
     Active Substance: ARIPIPRAZOLE
     Indication: SCHIZOPHRENIA
     Dosage: 10 MG
  3. DIAZEPAM. [Suspect]
     Active Substance: DIAZEPAM
     Dosage: 5 MG
  4. SERTRALINE HCL [Suspect]
     Active Substance: SERTRALINE HYDROCHLORIDE
     Indication: SCHIZOPHRENIA
     Dosage: 50 MG
  5. ARIPIPRAZOLE. [Suspect]
     Active Substance: ARIPIPRAZOLE
     Dosage: 5 MG
  6. DIAZEPAM. [Suspect]
     Active Substance: DIAZEPAM
     Dosage: 15 MG
  7. OLANZAPINE. [Suspect]
     Active Substance: OLANZAPINE
     Indication: SCHIZOPHRENIA
     Dosage: 10 MG
  8. SERTRALINE HCL [Suspect]
     Active Substance: SERTRALINE HYDROCHLORIDE
     Dosage: 100 MG
  9. SERTRALINE HCL [Suspect]
     Active Substance: SERTRALINE HYDROCHLORIDE
     Dosage: 150 MG
  10. OLANZAPINE. [Suspect]
     Active Substance: OLANZAPINE
     Dosage: 5 MG
  11. OMEPRAZOLE. [Suspect]
     Active Substance: OMEPRAZOLE
     Dosage: UNK
  12. RISPERIDONE. [Suspect]
     Active Substance: RISPERIDONE
     Indication: SCHIZOPHRENIA
     Dosage: 3 MG
     Route: 048

REACTIONS (6)
  - Schizophrenia [Unknown]
  - Dehydration [Unknown]
  - Sepsis [Unknown]
  - Off label use [Unknown]
  - Social avoidant behaviour [Unknown]
  - Treatment noncompliance [Unknown]
